FAERS Safety Report 21599002 (Version 1)
Quarter: 2022Q4

REPORT INFORMATION
  Report Type: Spontaneous
  Country: US (occurrence: None)
  Receive Date: 20221115
  Receipt Date: 20221115
  Transmission Date: 20230112
  Serious: Yes (Hospitalization, Other)
  Sender: FDA-Public Use
  Company Number: None

PATIENT
  Sex: Male
  Weight: 74.25 kg

DRUGS (2)
  1. ERLOTINIB [Suspect]
     Active Substance: ERLOTINIB
     Indication: Pancreatic carcinoma
     Dosage: FREQUENCY : DAILY;?
     Route: 048
     Dates: start: 20220718, end: 20221005
  2. xeloda 500 2po bid [Concomitant]
     Dates: start: 20220718, end: 20221005

REACTIONS (4)
  - Nausea [None]
  - Vomiting [None]
  - Blood bilirubin increased [None]
  - Liver function test increased [None]
